FAERS Safety Report 24040628 (Version 1)
Quarter: 2024Q3

REPORT INFORMATION
  Report Type: Report from Study
  Country: US (occurrence: US)
  Receive Date: 20240702
  Receipt Date: 20240702
  Transmission Date: 20241017
  Serious: Yes (Other)
  Sender: TEVA
  Company Number: US-TEVA-VS-3215597

PATIENT
  Age: 62 Year
  Sex: Female

DRUGS (3)
  1. HYDROXYZINE [Suspect]
     Active Substance: HYDROXYZINE HYDROCHLORIDE
     Indication: Product used for unknown indication
     Route: 065
  2. AUSTEDO [Suspect]
     Active Substance: DEUTETRABENAZINE
     Indication: Tardive dyskinesia
     Route: 048
     Dates: start: 20230913
  3. ELIQUIS [Concomitant]
     Active Substance: APIXABAN
     Indication: Cardiovascular disorder

REACTIONS (3)
  - Living in residential institution [Unknown]
  - Delusion [Unknown]
  - Hallucinations, mixed [Unknown]
